FAERS Safety Report 9192883 (Version 4)
Quarter: 2015Q1

REPORT INFORMATION
  Report Type: Spontaneous
  Country: SE (occurrence: SE)
  Receive Date: 20130327
  Receipt Date: 20150107
  Transmission Date: 20150721
  Serious: Yes (Other)
  Sender: FDA-Public Use
  Company Number: SE-PFIZER INC-2013087113

PATIENT
  Age: 80 Year
  Sex: Male

DRUGS (9)
  1. BEHEPAN [Suspect]
     Active Substance: HYDROXOCOBALAMIN
     Dosage: 2 MG, 1X/DAY
     Route: 048
     Dates: start: 201301
  2. BEHEPAN [Suspect]
     Active Substance: HYDROXOCOBALAMIN
     Indication: VITAMIN B12 DEFICIENCY
     Dosage: 1 MG, MONTHLY
     Dates: start: 201105
  3. FOLACIN [Suspect]
     Active Substance: FOLIC ACID
     Dosage: 5 MG, UNK
     Dates: start: 200808
  4. FOLACIN [Suspect]
     Active Substance: FOLIC ACID
     Dosage: 2 MG, 1X/DAY
     Dates: start: 201301
  5. FOLACIN [Suspect]
     Active Substance: FOLIC ACID
     Indication: VITAMIN B12 DEFICIENCY
     Dosage: 2.5 MG, UNK
     Dates: start: 2006, end: 200808
  6. BEHEPAN [Suspect]
     Active Substance: HYDROXOCOBALAMIN
     Dosage: 1 MG, UNK
     Route: 048
     Dates: start: 201211, end: 201301
  7. BEHEPAN [Suspect]
     Active Substance: HYDROXOCOBALAMIN
     Indication: VITAMIN B12 DEFICIENCY
     Dosage: UNK
     Dates: end: 201001
  8. BEHEPAN [Suspect]
     Active Substance: HYDROXOCOBALAMIN
     Dosage: 2 MG, UNK
     Route: 048
     Dates: start: 2006, end: 201105
  9. FOLACIN [Suspect]
     Active Substance: FOLIC ACID
     Dosage: 1 MG, UNK
     Dates: start: 201211, end: 201301

REACTIONS (16)
  - Benign prostatic hyperplasia [Unknown]
  - Oral discomfort [Recovering/Resolving]
  - Nasal dryness [Recovered/Resolved]
  - Feeling cold [Recovering/Resolving]
  - Skin discomfort [Recovering/Resolving]
  - Drug effect decreased [Unknown]
  - Memory impairment [Recovering/Resolving]
  - Erectile dysfunction [Recovered/Resolved]
  - Organic erectile dysfunction [Recovering/Resolving]
  - Sleep disorder [Recovered/Resolved]
  - Incontinence [Unknown]
  - Neurological symptom [Recovering/Resolving]
  - Nasal oedema [Recovered/Resolved]
  - Fatigue [Recovered/Resolved]
  - Feeling cold [Recovered/Resolved]
  - Pruritus [Recovering/Resolving]

NARRATIVE: CASE EVENT DATE: 2008
